FAERS Safety Report 6291661-3 (Version None)
Quarter: 2009Q3

REPORT INFORMATION
  Report Type: 
  Country: None (occurrence: None)
  Receive Date: 20090730
  Receipt Date: 20090723
  Transmission Date: 20100115
  Serious: Yes (Hospitalization)
  Sender: FDA-Public Use
  Company Number: AU-ASTRAZENECA-2009SE05700

PATIENT
  Age: 62 Year
  Sex: Male

DRUGS (4)
  1. ATACAND [Suspect]
     Route: 048
     Dates: end: 20080312
  2. NEXIUM [Concomitant]
     Route: 048
  3. CARTIA XT [Concomitant]
     Route: 048
  4. KLACID [Concomitant]
     Route: 048
     Dates: start: 20080310

REACTIONS (2)
  - DYSPHAGIA [None]
  - SWOLLEN TONGUE [None]
